FAERS Safety Report 17782104 (Version 1)
Quarter: 2020Q2

REPORT INFORMATION
  Report Type: Spontaneous
  Country: US (occurrence: US)
  Receive Date: 20200513
  Receipt Date: 20200513
  Transmission Date: 20200714
  Serious: Yes (Hospitalization)
  Sender: FDA-Public Use
  Company Number: None

PATIENT
  Age: 29 Year
  Sex: Female
  Weight: 79.83 kg

DRUGS (4)
  1. ALLEGRA [Concomitant]
     Active Substance: FEXOFENADINE HYDROCHLORIDE
  2. ZYRTEC [Concomitant]
     Active Substance: CETIRIZINE HYDROCHLORIDE
  3. BENADRYL [Concomitant]
     Active Substance: DIPHENHYDRAMINE HYDROCHLORIDE
  4. GASTROCROM [Suspect]
     Active Substance: CROMOLYN SODIUM
     Indication: BLOOD DISORDER
     Route: 048
     Dates: start: 20110701, end: 20170701

REACTIONS (2)
  - Chest pain [None]
  - Reaction to preservatives [None]

NARRATIVE: CASE EVENT DATE: 20170107
